FAERS Safety Report 24546235 (Version 4)
Quarter: 2025Q1

REPORT INFORMATION
  Report Type: Spontaneous
  Country: JP (occurrence: JP)
  Receive Date: 20241024
  Receipt Date: 20250204
  Transmission Date: 20250408
  Serious: Yes (Other)
  Sender: ELI LILLY AND COMPANY
  Company Number: JP-ELI_LILLY_AND_COMPANY-JP202410013494

PATIENT
  Age: 47 Year
  Sex: Female
  Weight: 56.6 kg

DRUGS (2)
  1. VERZENIO [Suspect]
     Active Substance: ABEMACICLIB
     Indication: Invasive lobular breast carcinoma
     Dosage: 150 MG, BID
     Route: 048
     Dates: start: 20240508, end: 20240619
  2. FASLODEX [Concomitant]
     Active Substance: FULVESTRANT
     Indication: Invasive lobular breast carcinoma
     Dates: start: 20240508

REACTIONS (1)
  - Hepatic function abnormal [Not Recovered/Not Resolved]

NARRATIVE: CASE EVENT DATE: 20240619
